FAERS Safety Report 5252425-2 (Version None)
Quarter: 2007Q1

REPORT INFORMATION
  Report Type: 
  Country: None (occurrence: None)
  Receive Date: 20070301
  Receipt Date: 20061207
  Transmission Date: 20070707
  Serious: Yes (Death, Other)
  Sender: FDA-Public Use
  Company Number: US-BRISTOL-MYERS SQUIBB COMPANY-13549373

PATIENT
  Age: 54 Year
  Sex: Male

DRUGS (9)
  1. ERBITUX [Suspect]
     Indication: LARYNGEAL CANCER
     Route: 051
     Dates: start: 20061019, end: 20061019
  2. TAXOL [Concomitant]
     Dates: start: 20061012, end: 20061012
  3. CARBOPLATIN [Concomitant]
     Dates: start: 20061012, end: 20061012
  4. DECADRON [Concomitant]
     Indication: PREMEDICATION
     Dates: start: 20060927
  5. ZANTAC [Concomitant]
     Indication: PREMEDICATION
     Dates: start: 20060927
  6. BENADRYL [Concomitant]
     Indication: PREMEDICATION
     Dates: start: 20060927
  7. ZOFRAN [Concomitant]
  8. TYLENOL [Concomitant]
  9. ALOXI [Concomitant]
     Indication: PREMEDICATION
     Dates: start: 20060927

REACTIONS (1)
  - CARDIO-RESPIRATORY ARREST [None]
